FAERS Safety Report 26009451 (Version 1)
Quarter: 2025Q4

REPORT INFORMATION
  Report Type: Spontaneous
  Country: MA (occurrence: MA)
  Receive Date: 20251107
  Receipt Date: 20251107
  Transmission Date: 20260118
  Serious: Yes (Death, Other)
  Sender: CELLTRION
  Company Number: MA-CELLTRION INC.-2025MA037136

PATIENT

DRUGS (2)
  1. INFLIXIMAB [Suspect]
     Active Substance: INFLIXIMAB
     Indication: Crohn^s disease
     Dosage: 5 MG/KG (FIRST INDUCTION DOSE ONLY)
     Route: 042
     Dates: start: 2023
  2. AZATHIOPRINE [Suspect]
     Active Substance: AZATHIOPRINE
     Indication: Crohn^s disease
     Dosage: 2.5 MG/KG/DAY

REACTIONS (4)
  - Respiratory failure [Fatal]
  - Sepsis [Fatal]
  - Disseminated varicella zoster virus infection [Unknown]
  - Herpes zoster reactivation [Unknown]
